FAERS Safety Report 9034995 (Version 1)
Quarter: 2013Q1

REPORT INFORMATION
  Report Type: Report from Study
  Country: US (occurrence: US)
  Receive Date: 20130129
  Receipt Date: 20130129
  Transmission Date: 20140127
  Serious: No
  Sender: FDA-Public Use
  Company Number: US-ABBOTT-12P-163-0894955-00

PATIENT
  Sex: Female
  Weight: 59.02 kg

DRUGS (4)
  1. HUMIRA 40 MG/0.8 ML PEN [Suspect]
     Indication: CROHN^S DISEASE
     Dates: start: 2008
  2. GABAPENTIN [Concomitant]
     Indication: BIPOLAR DISORDER
  3. METHADONE [Concomitant]
     Indication: DEPRESSION
  4. TOPOMAX [Concomitant]
     Indication: MIGRAINE

REACTIONS (6)
  - Abdominal pain lower [Recovering/Resolving]
  - Nausea [Recovering/Resolving]
  - Micturition urgency [Recovering/Resolving]
  - Urinary tract infection [Recovered/Resolved]
  - Blood glucose increased [Unknown]
  - Blood cholesterol increased [Unknown]
